FAERS Safety Report 7388643-7 (Version None)
Quarter: 2011Q2

REPORT INFORMATION
  Report Type: 
  Country: None (occurrence: None)
  Receive Date: 20110401
  Receipt Date: 20110322
  Transmission Date: 20111010
  Serious: Yes (Hospitalization, Other)
  Sender: FDA-Public Use
  Company Number: AU-JNJFOC-20110311311

PATIENT
  Age: 87 Year
  Sex: Female

DRUGS (5)
  1. RISPERIDONE [Suspect]
     Indication: DEMENTIA
     Route: 065
  2. RISPERIDONE [Suspect]
     Indication: AGITATION
     Route: 065
  3. VALPROATE SODIUM [Suspect]
     Route: 065
  4. VALPROATE SODIUM [Suspect]
     Indication: PRODUCT USED FOR UNKNOWN INDICATION
     Route: 065
  5. CITALOPRAM HYDROBROMIDE [Concomitant]
     Route: 065

REACTIONS (2)
  - HYPERNATRAEMIA [None]
  - CATATONIA [None]
